FAERS Safety Report 5082418-X (Version None)
Quarter: 2006Q3

REPORT INFORMATION
  Report Type: 
  Country: None (occurrence: None)
  Receive Date: 20060817
  Receipt Date: 20060808
  Transmission Date: 20061208
  Serious: Yes (Hospitalization)
  Sender: FDA-Public Use
  Company Number: FR-GLAXOSMITHKLINE-B0433618A

PATIENT
  Age: 17 Day
  Sex: Female

DRUGS (7)
  1. RETROVIR [Suspect]
     Indication: ANTIVIRAL PROPHYLAXIS
     Route: 048
     Dates: start: 20040918, end: 20041005
  2. RETROVIR [Suspect]
     Dates: start: 20040918, end: 20040918
  3. RETROVIR [Suspect]
     Dates: start: 20040520, end: 20040918
  4. KALETRA [Suspect]
     Dates: start: 20040520, end: 20040918
  5. VIREAD [Suspect]
     Dates: start: 20040520, end: 20040918
  6. COMBIVIR [Concomitant]
     Dates: end: 20040520
  7. VIRACEPT [Concomitant]
     Dates: end: 20040520

REACTIONS (3)
  - ANAEMIA [None]
  - DRUG EXPOSURE DURING PREGNANCY [None]
  - GLUCOSE-6-PHOSPHATE DEHYDROGENASE DEFICIENCY [None]
